FAERS Safety Report 26141826 (Version 1)
Quarter: 2025Q4

REPORT INFORMATION
  Report Type: Report from Study
  Country: CA (occurrence: CA)
  Receive Date: 20251210
  Receipt Date: 20251210
  Transmission Date: 20260117
  Serious: Yes (Other)
  Sender: HLS THERAPEUTICS
  Company Number: CA-HLS-202500918

PATIENT
  Age: 42 Year
  Sex: Male
  Weight: 110 kg

DRUGS (5)
  1. CLOZARIL [Suspect]
     Active Substance: CLOZAPINE
     Indication: Schizophrenia
     Route: 048
     Dates: start: 20250310
  2. CLOZARIL [Suspect]
     Active Substance: CLOZAPINE
     Indication: Schizophrenia
     Dosage: START DATE: 2025 MAR 20?AT BEDTIME
     Route: 048
  3. HALDOL [Concomitant]
     Active Substance: HALOPERIDOL
     Indication: Schizophrenia
     Dosage: GOAL TO DISCONTINUE ONCE CLOZAPINE REACHES THERAPEUTIC DOSE
     Route: 030
  4. HALDOL [Concomitant]
     Active Substance: HALOPERIDOL
     Indication: Schizophrenia
     Dosage: INJECTION
     Route: 030
  5. COGENTIN [Concomitant]
     Active Substance: BENZTROPINE MESYLATE
     Indication: Product used for unknown indication
     Route: 048

REACTIONS (7)
  - Dysarthria [Unknown]
  - Syncope [Unknown]
  - Feeling drunk [Unknown]
  - Tachycardia [Not Recovered/Not Resolved]
  - Orthostatic hypotension [Not Recovered/Not Resolved]
  - Body temperature decreased [Unknown]
  - Fall [Unknown]

NARRATIVE: CASE EVENT DATE: 20250314
